FAERS Safety Report 6336614-1 (Version None)
Quarter: 2009Q3

REPORT INFORMATION
  Report Type: 
  Country: None (occurrence: None)
  Receive Date: 20090831
  Receipt Date: 20090831
  Transmission Date: 20100115
  Serious: Yes (Hospitalization)
  Sender: FDA-Public Use
  Company Number: None

PATIENT
  Age: 64 Year
  Sex: Male
  Weight: 43 kg

DRUGS (2)
  1. ADENOSINE [Suspect]
     Indication: CARDIOVASCULAR DISORDER
     Dosage: 90 ML ONCE IV
     Route: 042
     Dates: start: 20090817
  2. ADENOSINE [Suspect]
     Indication: SURGERY
     Dosage: 90 ML ONCE IV
     Route: 042
     Dates: start: 20090817

REACTIONS (7)
  - CARDIO-RESPIRATORY ARREST [None]
  - HYPERCAPNIA [None]
  - HYPOXIA [None]
  - OBSTRUCTIVE AIRWAYS DISORDER [None]
  - RESPIRATORY ARREST [None]
  - RESPIRATORY DISTRESS [None]
  - VENTRICULAR TACHYCARDIA [None]
